FAERS Safety Report 5710160-8 (Version None)
Quarter: 2008Q2

REPORT INFORMATION
  Report Type: 
  Country: None (occurrence: None)
  Receive Date: 20080418
  Receipt Date: 20080201
  Transmission Date: 20081010
  Serious: No
  Sender: FDA-Public Use
  Company Number: US-ASTRAZENECA-2008UW02279

PATIENT
  Age: 69 Year
  Sex: Female
  Weight: 95.3 kg

DRUGS (10)
  1. METOPROLOL SUCCINATE [Suspect]
     Indication: HYPERTENSION
     Route: 048
     Dates: end: 20080101
  2. PLAVIX [Concomitant]
  3. AVANDAMET [Concomitant]
  4. NORVASC [Concomitant]
  5. CLONIDINE HCL [Concomitant]
  6. BENICAR [Concomitant]
  7. ZETIA [Concomitant]
  8. ARTHROTEC [Concomitant]
  9. GUPIZIDE [Concomitant]
  10. SYNTHROID [Concomitant]

REACTIONS (2)
  - PHARYNGEAL OEDEMA [None]
  - TONGUE BITING [None]
